FAERS Safety Report 8230806-2 (Version None)
Quarter: 2012Q1

REPORT INFORMATION
  Report Type: 
  Country: None (occurrence: None)
  Receive Date: 20120322
  Receipt Date: 20120322
  Transmission Date: 20120608
  Serious: Yes (Hospitalization)
  Sender: FDA-Public Use
  Company Number: None

PATIENT
  Sex: Male
  Weight: 97.51 kg

DRUGS (2)
  1. GEMCITABINE HYDROCHLORIDE [Suspect]
     Dosage: 2240 MG
  2. CISPLATIN [Suspect]
     Dosage: 154 MG

REACTIONS (4)
  - FEBRILE NEUTROPENIA [None]
  - WHITE BLOOD CELL COUNT ABNORMAL [None]
  - MALAISE [None]
  - PLATELET COUNT ABNORMAL [None]
